FAERS Safety Report 10639998 (Version 2)
Quarter: 2015Q1

REPORT INFORMATION
  Report Type: Spontaneous
  Country: US (occurrence: US)
  Receive Date: 20141209
  Receipt Date: 20150120
  Transmission Date: 20150720
  Serious: Yes (Other)
  Sender: FDA-Public Use
  Company Number: US-SA-2014SA167055

PATIENT
  Age: 71 Year
  Sex: Male

DRUGS (2)
  1. LANTUS SOLOSTAR [Suspect]
     Active Substance: INSULIN GLARGINE
     Indication: TYPE 2 DIABETES MELLITUS
     Dosage: DOSE AND DAILY DOSE: 15-30 UNITS SLIDING
     Route: 065
     Dates: start: 2009
  2. SOLOSTAR [Concomitant]
     Active Substance: DEVICE
     Dates: start: 2009

REACTIONS (3)
  - Cardiac disorder [Unknown]
  - Visual acuity reduced [Unknown]
  - Cataract [Unknown]
